FAERS Safety Report 9607017 (Version 3)
Quarter: 2014Q1

REPORT INFORMATION
  Report Type: Spontaneous
  Country: JP (occurrence: JP)
  Receive Date: 20131009
  Receipt Date: 20140214
  Transmission Date: 20141002
  Serious: Yes (Other)
  Sender: FDA-Public Use
  Company Number: JP-ROCHE-1283415

PATIENT
  Age: 69 Year
  Sex: Male
  Weight: 52 kg

DRUGS (9)
  1. BONVIVA [Suspect]
     Indication: OSTEOPOROSIS
     Route: 042
     Dates: start: 20130926, end: 20130926
  2. PREDNISOLONE [Concomitant]
     Indication: RHEUMATOID ARTHRITIS
     Route: 048
  3. NEXIUM [Concomitant]
     Indication: GASTRIC ULCER
     Route: 048
     Dates: start: 20120801
  4. CLARITH [Concomitant]
     Indication: INTERSTITIAL LUNG DISEASE
     Route: 048
     Dates: start: 20130801
  5. RHEUMATREX [Concomitant]
     Indication: RHEUMATOID ARTHRITIS
     Route: 048
     Dates: start: 20040610
  6. LOXONIN [Concomitant]
     Indication: RHEUMATOID ARTHRITIS
     Route: 048
  7. MUCOSTA [Concomitant]
     Indication: PROPHYLAXIS
     Route: 048
  8. ADALAT CR [Concomitant]
     Indication: HYPERTENSION
     Route: 048
  9. AMOBAN [Concomitant]
     Indication: INSOMNIA
     Route: 048

REACTIONS (3)
  - Dizziness [Recovered/Resolved]
  - Fall [Unknown]
  - Memory impairment [Unknown]
